FAERS Safety Report 9162485 (Version 2)
Quarter: 2013Q2

REPORT INFORMATION
  Report Type: Spontaneous
  Country: CN (occurrence: CN)
  Receive Date: 20130314
  Receipt Date: 20130411
  Transmission Date: 20140414
  Serious: Yes (Other)
  Sender: FDA-Public Use
  Company Number: CN-PFIZER INC-2013082872

PATIENT
  Age: 2 Year
  Sex: Male
  Weight: 15 kg

DRUGS (1)
  1. IBUPROFEN [Suspect]
     Indication: PYREXIA
     Dosage: 100ML BOTTLE: 2G, 240 MG 4ML 3 TIMES A DAY
     Route: 048
     Dates: start: 20100905, end: 20100905

REACTIONS (3)
  - Rash [Recovering/Resolving]
  - Pruritus [Recovering/Resolving]
  - Oedema peripheral [Recovering/Resolving]
